FAERS Safety Report 8105707 (Version 4)
Quarter: 2013Q4

REPORT INFORMATION
  Report Type: Spontaneous
  Country: US (occurrence: US)
  Receive Date: 20110825
  Receipt Date: 20131202
  Transmission Date: 20140711
  Serious: Yes (Hospitalization)
  Sender: FDA-Public Use
  Company Number: US-BAYER-2011-075689

PATIENT
  Sex: Female
  Weight: 76 kg

DRUGS (8)
  1. YAZ [Suspect]
     Dosage: UNK
     Route: 048
     Dates: start: 2009
  2. PANTOPRAZOLE [Concomitant]
     Dosage: 40 MG, UNK
     Route: 048
     Dates: start: 200901
  3. METHADONE [Concomitant]
     Dosage: 10 MG, UNK
     Route: 048
     Dates: start: 200902, end: 200911
  4. PHENTERMINE [Concomitant]
     Dosage: 37.5 MG, UNK
     Route: 048
     Dates: start: 200904, end: 200909
  5. KAPIDEX [Concomitant]
     Dosage: 60 MG, UNK
     Route: 048
     Dates: start: 200906, end: 200907
  6. LEVOTHYROXIN [Concomitant]
     Dosage: 50 MCG/24HR, UNK
     Dates: start: 200907
  7. CHANTIX [Concomitant]
     Dosage: UNK
     Dates: start: 200908
  8. CELEXA [Concomitant]
     Indication: ANXIETY

REACTIONS (2)
  - Gallbladder injury [None]
  - Cholecystitis chronic [None]
